FAERS Safety Report 9174164 (Version 2)
Quarter: 2013Q2

REPORT INFORMATION
  Report Type: Spontaneous
  Country: FR (occurrence: FR)
  Receive Date: 20130320
  Receipt Date: 20130401
  Transmission Date: 20140414
  Serious: Yes (Death)
  Sender: FDA-Public Use
  Company Number: PHHY2013FR026622

PATIENT
  Age: 58 Year
  Sex: Female

DRUGS (8)
  1. CYTARABINE [Suspect]
     Indication: ACUTE MYELOID LEUKAEMIA
     Dosage: 4980 MG, QD
     Route: 042
     Dates: start: 20120814, end: 20120819
  2. VENLAFAXINE [Suspect]
     Dosage: 75 MG, QD
     Route: 048
     Dates: start: 20120814, end: 20120821
  3. ALPRAZOLAM SANDOZ [Suspect]
     Dosage: 0.5 MG, UNK
     Route: 048
     Dates: start: 20120705, end: 20120828
  4. ARACYTINE [Suspect]
     Indication: ACUTE MYELOID LEUKAEMIA
     Dosage: 40 MG, QD
     Route: 037
     Dates: start: 20120813, end: 20120813
  5. METHOTREXATE [Suspect]
     Indication: ACUTE MYELOID LEUKAEMIA
     Dosage: 15 MG, QD
     Route: 037
     Dates: start: 20120813, end: 20120813
  6. EMEND [Suspect]
     Dosage: 125 MG, QD
     Route: 048
     Dates: start: 20120814, end: 20120818
  7. ACUPAN [Suspect]
     Dosage: 1 DF, UNK
     Route: 042
     Dates: start: 20120818
  8. ZOPHREN [Suspect]
     Dosage: UNK UKN, UNK
     Route: 042
     Dates: start: 20120814, end: 20120817

REACTIONS (5)
  - Coma [Fatal]
  - Encephalopathy [Fatal]
  - Status epilepticus [Fatal]
  - Sepsis [Fatal]
  - Bone marrow failure [Fatal]
